FAERS Safety Report 6081782-2 (Version None)
Quarter: 2009Q1

REPORT INFORMATION
  Report Type: 
  Country: None (occurrence: None)
  Receive Date: 20090218
  Receipt Date: 20090213
  Transmission Date: 20090719
  Serious: Yes (Other)
  Sender: FDA-Public Use
  Company Number: US-BAYER-200913233NA

PATIENT
  Age: 88 Year
  Sex: Female

DRUGS (2)
  1. AVELOX [Suspect]
     Indication: DRUG USE FOR UNKNOWN INDICATION
     Dates: start: 20090209
  2. PREDNISONE [Concomitant]
     Dates: start: 20090209

REACTIONS (5)
  - FEELING ABNORMAL [None]
  - HYPOAESTHESIA [None]
  - NEUROLOGICAL SYMPTOM [None]
  - TREMOR [None]
  - UNEVALUABLE EVENT [None]
